FAERS Safety Report 6978960-4 (Version None)
Quarter: 2010Q3

REPORT INFORMATION
  Report Type: 
  Country: None (occurrence: None)
  Receive Date: 20100913
  Receipt Date: 20100903
  Transmission Date: 20110219
  Serious: Yes (Hospitalization)
  Sender: FDA-Public Use
  Company Number: FR-MERCK-1009FRA00008

PATIENT
  Age: 79 Year
  Sex: Male

DRUGS (10)
  1. PRIMAXIN [Suspect]
     Route: 042
     Dates: start: 20100629, end: 20100712
  2. VANCOMYCIN [Suspect]
     Route: 042
     Dates: start: 20100626, end: 20100712
  3. CLAFORAN [Concomitant]
     Route: 042
     Dates: start: 20100626, end: 20100629
  4. GENTAMICIN [Concomitant]
     Route: 065
     Dates: start: 20100626, end: 20100627
  5. ACETAMINOPHEN [Concomitant]
     Route: 065
     Dates: start: 20100614
  6. LOVENOX [Concomitant]
     Route: 065
     Dates: start: 20100614
  7. ZOFRAN [Concomitant]
     Route: 065
     Dates: start: 20100624, end: 20100712
  8. AMIKIN [Concomitant]
     Route: 065
     Dates: start: 20100630, end: 20100705
  9. TRAMADOL HYDROCHLORIDE [Concomitant]
     Route: 065
     Dates: start: 20100626, end: 20100712
  10. CEFAMANDOLE [Concomitant]
     Route: 065
     Dates: start: 20100614, end: 20100626

REACTIONS (4)
  - DRUG RASH WITH EOSINOPHILIA AND SYSTEMIC SYMPTOMS [None]
  - EOSINOPHILIA [None]
  - PROTEINURIA [None]
  - RASH [None]
